FAERS Safety Report 14295861 (Version 6)
Quarter: 2018Q2

REPORT INFORMATION
  Report Type: Spontaneous
  Country: US (occurrence: US)
  Receive Date: 20171218
  Receipt Date: 20180608
  Transmission Date: 20180711
  Serious: Yes (Congenital Anomaly, Other)
  Sender: FDA-Public Use
  Company Number: PHEH2017US039736

PATIENT
  Sex: Female

DRUGS (1)
  1. ZOFRAN [Suspect]
     Active Substance: ONDANSETRON HYDROCHLORIDE
     Indication: FOETAL EXPOSURE DURING PREGNANCY
     Dosage: MOTHER^S DOSE: 02 MG, QD
     Route: 064

REACTIONS (40)
  - Gastrointestinal ischaemia [Unknown]
  - Foetal exposure during pregnancy [Unknown]
  - Atrial septal defect [Unknown]
  - Intestinal perforation [Unknown]
  - Asthma [Unknown]
  - Anaemia neonatal [Recovered/Resolved]
  - Hernia congenital [Unknown]
  - Gastroschisis [Unknown]
  - Pleural effusion [Unknown]
  - Headache [Unknown]
  - Pneumonitis [Unknown]
  - Necrosis ischaemic [Unknown]
  - Atelectasis neonatal [Unknown]
  - Mitral valve incompetence [Unknown]
  - Thrombocytopenia [Unknown]
  - Right ventricular dilatation [Unknown]
  - Left-to-right cardiac shunt [Unknown]
  - Gastrointestinal necrosis [Unknown]
  - Short-bowel syndrome [Unknown]
  - Pharyngitis [Unknown]
  - Pyrexia [Unknown]
  - Constipation [Unknown]
  - Pericardial effusion [Unknown]
  - Premature baby [Unknown]
  - Wheezing [Unknown]
  - Oropharyngeal pain [Unknown]
  - Arthralgia [Unknown]
  - Pulmonary valve incompetence [Unknown]
  - Tricuspid valve incompetence [Unknown]
  - Superior vena cava syndrome [Unknown]
  - Hypertrophy [Unknown]
  - Cough [Unknown]
  - Rhinorrhoea [Unknown]
  - Congenital diaphragmatic hernia [Unknown]
  - Congenital pulmonary hypertension [Unknown]
  - Deafness [Unknown]
  - Respiratory syncytial virus bronchiolitis [Unknown]
  - Injury [Unknown]
  - Diarrhoea [Unknown]
  - Urinary tract infection [Unknown]
